FAERS Safety Report 17047391 (Version 1)
Quarter: 2019Q4

REPORT INFORMATION
  Report Type: Spontaneous
  Country: US (occurrence: US)
  Receive Date: 20191018
  Receipt Date: 20191018
  Transmission Date: 20200122
  Serious: Yes (Hospitalization)
  Sender: FDA-Public Use
  Company Number: None

PATIENT
  Age: 59 Year
  Sex: Male

DRUGS (4)
  1. DEXAMETHASONE. [Concomitant]
     Active Substance: DEXAMETHASONE
  2. DULOXETINE. [Concomitant]
     Active Substance: DULOXETINE
  3. MORPHINE SUL [Concomitant]
     Active Substance: MORPHINE SULFATE
  4. OCTREOTIDE. [Suspect]
     Active Substance: OCTREOTIDE
     Indication: NEOPLASM MALIGNANT
     Route: 058
     Dates: start: 20181114

REACTIONS (1)
  - Radiotherapy [None]
